FAERS Safety Report 6489725-4 (Version None)
Quarter: 2009Q4

REPORT INFORMATION
  Report Type: 
  Country: None (occurrence: None)
  Receive Date: 20091207
  Receipt Date: 20091123
  Transmission Date: 20100525
  Serious: Yes (Death, Hospitalization)
  Sender: FDA-Public Use
  Company Number: 2009AC000202

PATIENT
  Age: 72 Year
  Sex: Female

DRUGS (40)
  1. DIGOXIN [Suspect]
     Indication: CARDIAC DISORDER
     Dosage: 0.125 MG;QD;PO
     Route: 048
  2. DIGOXIN [Suspect]
     Dosage: 0.250 MG;PO
     Route: 048
  3. BUMETANIDE [Concomitant]
  4. WARFARIN SODIUM [Concomitant]
  5. CYCLOBENZAPRINE [Concomitant]
  6. CLORAZEPATE DIPOTASSIUM [Concomitant]
  7. JANUVIA [Concomitant]
  8. COMBIVENT [Concomitant]
  9. CARVEDILOL [Concomitant]
  10. METOLAZONE [Concomitant]
  11. CARTIA XT [Concomitant]
  12. TRAMADOL HCL [Concomitant]
  13. SIMVASTATIN [Concomitant]
  14. PREDNISONE [Concomitant]
  15. HYDROXYZINE HCL [Concomitant]
  16. NEXIUM [Concomitant]
  17. POTASSIUM CHLORIDE [Concomitant]
  18. XOPENEX [Concomitant]
  19. LANTUS [Concomitant]
  20. NITROFURANTOIN-MACRO [Concomitant]
  21. ALPHAGAN [Concomitant]
  22. LISINOPRIL [Concomitant]
  23. VIGAMOX [Concomitant]
  24. IPRATROPIUM [Concomitant]
  25. CLINDAMYCIN HCL [Concomitant]
  26. HUMALOG [Concomitant]
  27. CEFADROXIL [Concomitant]
  28. FUROSEMIDE [Concomitant]
  29. CLOPIDOGREL BISULFATE [Concomitant]
  30. TOPROL-XL [Concomitant]
  31. CARDIZEM [Concomitant]
  32. BUMEX [Concomitant]
  33. COUMADIN [Concomitant]
  34. POTASSIUM [Concomitant]
  35. SIMVASTATIN [Concomitant]
  36. JANUVIA [Concomitant]
  37. CARDIZEM [Concomitant]
  38. COMBIVENT [Concomitant]
  39. COREG [Concomitant]
  40. INSULIN [Concomitant]

REACTIONS (17)
  - ANXIETY [None]
  - ARTERIOSCLEROSIS CORONARY ARTERY [None]
  - ASTHENIA [None]
  - ATRIAL FIBRILLATION [None]
  - CARDIAC FAILURE CONGESTIVE [None]
  - COR PULMONALE [None]
  - DEHYDRATION [None]
  - DEPRESSED MOOD [None]
  - DIABETES MELLITUS INADEQUATE CONTROL [None]
  - ECONOMIC PROBLEM [None]
  - HYPOKALAEMIA [None]
  - MUSCULOSKELETAL PAIN [None]
  - OBSTRUCTIVE AIRWAYS DISORDER [None]
  - PNEUMONIA [None]
  - RENAL FAILURE ACUTE [None]
  - RENAL FAILURE CHRONIC [None]
  - THROMBOCYTOPENIA [None]
